FAERS Safety Report 7509105-X (Version None)
Quarter: 2011Q2

REPORT INFORMATION
  Report Type: 
  Country: None (occurrence: None)
  Receive Date: 20110527
  Receipt Date: 20110513
  Transmission Date: 20111010
  Serious: Yes (Hospitalization)
  Sender: FDA-Public Use
  Company Number: JP-JNJFOC-20101204534

PATIENT
  Sex: Female
  Weight: 35 kg

DRUGS (18)
  1. REMICADE [Suspect]
     Dosage: 45TH DOSE
     Route: 042
     Dates: start: 20100115
  2. PROGRAF [Suspect]
     Indication: RHEUMATOID ARTHRITIS
     Route: 048
     Dates: end: 20100908
  3. PREDNISOLONE [Suspect]
     Route: 048
  4. MAGNESIUM SULFATE [Concomitant]
     Route: 048
  5. RHEUMATREX [Suspect]
     Indication: RHEUMATOID ARTHRITIS
     Route: 048
     Dates: end: 20100908
  6. WARKMIN [Concomitant]
     Route: 048
  7. REMICADE [Suspect]
     Dosage: 51ST DOSE
     Route: 042
     Dates: start: 20100906
  8. REMICADE [Suspect]
     Route: 042
     Dates: start: 20031114
  9. VOLTAREN [Concomitant]
     Indication: RHEUMATOID ARTHRITIS
     Route: 048
  10. ALESION [Concomitant]
     Route: 048
  11. AZULENE-GLUTAMINE FINE GRANULE [Concomitant]
     Route: 048
  12. REMICADE [Suspect]
     Dosage: 47TH DOSE
     Route: 042
     Dates: start: 20100319
  13. REMICADE [Suspect]
     Indication: RHEUMATOID ARTHRITIS
     Dosage: 11TH DOSE
     Route: 042
     Dates: start: 20050720
  14. PREDNISOLONE [Suspect]
     Indication: RHEUMATOID ARTHRITIS
     Route: 048
  15. FOLIC ACID [Concomitant]
     Indication: PROPHYLAXIS
     Route: 048
     Dates: end: 20100908
  16. ACTONEL [Concomitant]
     Route: 048
  17. RABEPRAZOLE SODIUM [Concomitant]
     Route: 048
  18. RINDERON- VG [Concomitant]
     Route: 048

REACTIONS (1)
  - LISTERIA SEPSIS [None]
